FAERS Safety Report 9631460 (Version 2)
Quarter: 2013Q4

REPORT INFORMATION
  Report Type: Spontaneous
  Country: DE (occurrence: None)
  Receive Date: 20131008
  Receipt Date: 20131015
  Transmission Date: 20140711
  Serious: Yes (Other)
  Sender: FDA-Public Use
  Company Number: 2013038110

PATIENT
  Age: 44 Year
  Sex: Male

DRUGS (1)
  1. PROTHROMBIN [Suspect]
     Indication: COAGULOPATHY
     Dosage: INTRAVENOUS (NOT OTHERWISE SPECIFIED)?
     Route: 042
     Dates: start: 20130829

REACTIONS (2)
  - Ischaemic stroke [None]
  - Monoparesis [None]
